FAERS Safety Report 24343765 (Version 1)
Quarter: 2024Q3

REPORT INFORMATION
  Report Type: Spontaneous
  Country: ES (occurrence: ES)
  Receive Date: 20240920
  Receipt Date: 20240920
  Transmission Date: 20241017
  Serious: Yes (Hospitalization)
  Sender: RANBAXY
  Company Number: ES-SUN PHARMACEUTICAL INDUSTRIES LTD-2024RR-469066

PATIENT
  Age: 48 Year
  Sex: Male

DRUGS (5)
  1. VENLAFAXINE [Interacting]
     Active Substance: VENLAFAXINE HYDROCHLORIDE
     Indication: Huntington^s disease
     Dosage: 75 MILLIGRAM, DAILY
     Route: 048
     Dates: start: 202002, end: 20240406
  2. PIMOZIDE [Interacting]
     Active Substance: PIMOZIDE
     Indication: Huntington^s disease
     Dosage: 4 MILLIGRAM, DAILY
     Route: 048
     Dates: start: 202003, end: 20240406
  3. MIRTAZAPINE [Interacting]
     Active Substance: MIRTAZAPINE
     Indication: Huntington^s disease
     Dosage: 30 MILLIGRAM, DAILY
     Route: 048
     Dates: start: 202002, end: 20240406
  4. ZOLPIDEM [Interacting]
     Active Substance: ZOLPIDEM TARTRATE
     Indication: Huntington^s disease
     Dosage: 10 MILLIGRAM, DAILY
     Route: 048
     Dates: start: 202002, end: 20240406
  5. QUETIAPINE [Interacting]
     Active Substance: QUETIAPINE
     Indication: Huntington^s disease
     Dosage: 300 MILLIGRAM, DAILY
     Route: 048
     Dates: start: 202106, end: 20240406

REACTIONS (1)
  - Neuroleptic malignant syndrome [Recovered/Resolved]

NARRATIVE: CASE EVENT DATE: 20240405
